FAERS Safety Report 25599986 (Version 2)
Quarter: 2025Q3

REPORT INFORMATION
  Report Type: Spontaneous
  Country: US (occurrence: US)
  Receive Date: 20250724
  Receipt Date: 20250902
  Transmission Date: 20251020
  Serious: No
  Sender: LUPIN
  Company Number: US-LUPIN PHARMACEUTICALS INC.-2025-06314

PATIENT

DRUGS (1)
  1. ALBUTEROL SULFATE [Suspect]
     Active Substance: ALBUTEROL SULFATE
     Indication: Sarcoidosis
     Dosage: Q6H, 2 PUFFS EVERY 6 HOURS

REACTIONS (4)
  - Off label use [Unknown]
  - Device occlusion [Unknown]
  - Device delivery system issue [Unknown]
  - Device issue [Unknown]
